FAERS Safety Report 8925202 (Version 1)
Quarter: 2012Q4

REPORT INFORMATION
  Report Type: 
  Country: US (occurrence: US)
  Receive Date: 20121126
  Receipt Date: 20121126
  Transmission Date: 20130627
  Serious: No
  Sender: FDA-Public Use
  Company Number: US-ASTRAZENECA-2012SE23189

PATIENT
  Age: 44 Year
  Sex: Female
  Weight: 56.2 kg

DRUGS (10)
  1. NEXIUM [Suspect]
     Indication: GASTROOESOPHAGEAL REFLUX DISEASE
     Route: 048
  2. OMEPRAZOLE [Suspect]
     Indication: GASTROOESOPHAGEAL REFLUX DISEASE
     Route: 048
  3. GABAPENTIN [Concomitant]
     Indication: NEURALGIA
  4. DIAZEPAM [Concomitant]
     Indication: MUSCLE SPASMS
  5. LORTAB HYDROCODONE [Concomitant]
  6. LOMOTIL [Concomitant]
     Indication: DIARRHOEA
  7. ESTROGEN CREAM [Concomitant]
  8. WELLBUTRIN [Concomitant]
  9. PREVACID [Concomitant]
  10. ANTIBIOTICS [Concomitant]

REACTIONS (8)
  - Irritable bowel syndrome [Unknown]
  - Gastrooesophageal reflux disease [Unknown]
  - Ulcer [Unknown]
  - Sensation of foreign body [Unknown]
  - Gastrooesophageal reflux disease [Unknown]
  - Vomiting [Unknown]
  - Drug ineffective [Unknown]
  - Intentional drug misuse [Unknown]
